FAERS Safety Report 7651532-4 (Version None)
Quarter: 2011Q3

REPORT INFORMATION
  Report Type: 
  Country: None (occurrence: None)
  Receive Date: 20110802
  Receipt Date: 20110729
  Transmission Date: 20111222
  Serious: Yes (Death, Other)
  Sender: FDA-Public Use
  Company Number: PHHY2010MT39198

PATIENT
  Age: 70 Year
  Sex: Female

DRUGS (1)
  1. ZOMETA [Suspect]
     Indication: METASTASES TO BONE
     Dosage: 4 MG/5ML, EVERY 4 WEEKS
     Dates: start: 20100201

REACTIONS (5)
  - NEOPLASM MALIGNANT [None]
  - CONVULSION [None]
  - NEOPLASM PROGRESSION [None]
  - HYPOCALCAEMIA [None]
  - METASTASES TO CENTRAL NERVOUS SYSTEM [None]
